FAERS Safety Report 11613970 (Version 1)
Quarter: 2015Q4

REPORT INFORMATION
  Report Type: Spontaneous
  Country: FR (occurrence: FR)
  Receive Date: 20151008
  Receipt Date: 20151008
  Transmission Date: 20160304
  Serious: Yes (Hospitalization)
  Sender: FDA-Public Use
  Company Number: FR-ASTRAZENECA-2015SE95872

PATIENT
  Age: 17961 Day
  Sex: Male

DRUGS (9)
  1. BRILIQUE [Suspect]
     Active Substance: TICAGRELOR
     Indication: AORTIC STENT INSERTION
     Route: 048
     Dates: start: 20150717
  2. OLMESARTAN/AMLODIPINE [Concomitant]
     Active Substance: AMLODIPINE BESYLATE\OLMESARTAN MEDOXOMIL
     Dosage: 40/10 MG ONE DF AT MORNING
  3. INDAPAMIDE. [Concomitant]
     Active Substance: INDAPAMIDE
     Dosage: 1.5 MG SR AT MORNING
  4. COUMADINE [Interacting]
     Active Substance: WARFARIN SODIUM
     Indication: ATRIAL FIBRILLATION
     Dosage: EACH OTHER DAY BETWEEN 4 AND 5 MG
     Route: 048
     Dates: start: 2010, end: 20150720
  5. PRAVASTATIN [Concomitant]
     Active Substance: PRAVASTATIN\PRAVASTATIN SODIUM
  6. SODIUM BICARBONATE. [Concomitant]
     Active Substance: SODIUM BICARBONATE
  7. PLAVIX [Interacting]
     Active Substance: CLOPIDOGREL BISULFATE
     Route: 048
     Dates: start: 20150710, end: 20150717
  8. TRINITRINE [Concomitant]
     Active Substance: NITROGLYCERIN
     Dosage: 2 PUFFS IF NEEDED
  9. KARDEGIC [Interacting]
     Active Substance: ASPIRIN LYSINE
     Route: 048
     Dates: start: 20150710

REACTIONS (3)
  - Melaena [Recovered/Resolved]
  - Drug interaction [Unknown]
  - Anaemia [Recovered/Resolved]

NARRATIVE: CASE EVENT DATE: 20150716
